FAERS Safety Report 24150439 (Version 4)
Quarter: 2024Q3

REPORT INFORMATION
  Report Type: Report from Study
  Country: GB (occurrence: GB)
  Receive Date: 20240730
  Receipt Date: 20240809
  Transmission Date: 20241017
  Serious: Yes (Hospitalization)
  Sender: SANDOZ
  Company Number: GB-002147023-NVSC2021GB107836

PATIENT
  Sex: Female

DRUGS (11)
  1. OMNITROPE [Suspect]
     Active Substance: SOMATROPIN
     Indication: Growth hormone deficiency
     Dosage: 0.3 MG, QD (FORMULATION: CARTRIDGES) (5/1.5 MG/ML)
     Route: 058
     Dates: start: 2011
  2. OMNITROPE [Suspect]
     Active Substance: SOMATROPIN
     Dosage: 0.3 MG, QD
     Route: 058
     Dates: start: 2012
  3. ATORVASTATIN [Concomitant]
     Active Substance: ATORVASTATIN
     Indication: Product used for unknown indication
     Dosage: UNK
     Route: 065
  4. CALCIUM CARBONATE [Concomitant]
     Active Substance: CALCIUM CARBONATE
     Indication: Product used for unknown indication
     Dosage: UNK
     Route: 065
  5. DESMOPRESSIN [Concomitant]
     Active Substance: DESMOPRESSIN
     Indication: Product used for unknown indication
     Dosage: UNK
     Route: 065
  6. HYDROCORTISONE [Concomitant]
     Active Substance: HYDROCORTISONE\HYDROCORTISONE ACETATE
     Indication: Product used for unknown indication
     Dosage: UNK
     Route: 065
  7. LEVOMEPROMAZINE [Concomitant]
     Active Substance: LEVOMEPROMAZINE
     Indication: Product used for unknown indication
     Dosage: UNK
     Route: 065
  8. LEVOTHYROXINE [Concomitant]
     Active Substance: LEVOTHYROXINE\LEVOTHYROXINE SODIUM
     Indication: Product used for unknown indication
     Dosage: UNK
     Route: 065
  9. METOCLOPRAMIDE [Concomitant]
     Active Substance: METOCLOPRAMIDE
     Indication: Product used for unknown indication
     Dosage: UNK
     Route: 065
  10. ETHINYL ESTRADIOL\LEVONORGESTREL ACETATE [Concomitant]
     Active Substance: ETHINYL ESTRADIOL\LEVONORGESTREL ACETATE
     Indication: Product used for unknown indication
     Dosage: UNK
     Route: 065
  11. TRAMADOL [Concomitant]
     Active Substance: TRAMADOL\TRAMADOL HYDROCHLORIDE
     Indication: Product used for unknown indication
     Dosage: UNK
     Route: 065

REACTIONS (13)
  - Fall [Unknown]
  - Heavy menstrual bleeding [Unknown]
  - Somnolence [Unknown]
  - Menstrual clots [Unknown]
  - Amenorrhoea [Unknown]
  - Ill-defined disorder [Unknown]
  - Unevaluable event [Unknown]
  - Fatigue [Unknown]
  - Product dose omission issue [Unknown]
  - Drug dose omission by device [Unknown]
  - Device dispensing error [Unknown]
  - Product dose omission issue [Unknown]
  - Product container issue [Unknown]

NARRATIVE: CASE EVENT DATE: 20240724
